FAERS Safety Report 9516440 (Version 3)
Quarter: 2013Q4

REPORT INFORMATION
  Report Type: Spontaneous
  Country: US (occurrence: US)
  Receive Date: 20130911
  Receipt Date: 20131203
  Transmission Date: 20140711
  Serious: Yes (Other)
  Sender: FDA-Public Use
  Company Number: US-PFIZER INC-2013258403

PATIENT
  Age: 76 Year
  Sex: Female
  Weight: 73.5 kg

DRUGS (18)
  1. FLECTOR [Suspect]
     Indication: ARTHRALGIA
     Dosage: UNK
     Route: 062
     Dates: start: 2010
  2. FLECTOR [Suspect]
     Indication: ARTHRALGIA
     Dosage: UNK
     Route: 062
     Dates: start: 2012
  3. FLECTOR [Suspect]
     Dosage: UNK
     Route: 062
     Dates: start: 2013
  4. FLECTOR [Suspect]
     Dosage: 1.3 %, 1X/DAY (APPLY TO AFFECTED AREA QD FOR 12 HOURS)
     Route: 062
     Dates: start: 20130918
  5. PRILOSEC [Concomitant]
     Indication: DYSPEPSIA
     Dosage: 25 MG, DAILY
  6. BACLOFEN [Concomitant]
     Dosage: 10 MG, 2X/DAY
     Route: 048
     Dates: start: 20130918
  7. OXYCODONE [Concomitant]
     Indication: PAIN
     Dosage: 15 MG, 1X/DAY (ONE TABLET Q 6-8 PRN )
     Route: 048
     Dates: start: 20131008
  8. OXYCODONE [Concomitant]
     Dosage: 15 MG, 1X/DAY (ONE TABLET Q 6-8 PRN )
     Route: 048
     Dates: start: 20130701
  9. OXYCODONE [Concomitant]
     Dosage: 30 MG, 3X/DAY
     Route: 048
     Dates: start: 20120328
  10. TRAMADOL [Concomitant]
     Dosage: 50 MG, 4X/DAY (ONE TABLET FOUR TIMES A DAY)
     Route: 048
     Dates: start: 20131008
  11. TRAMADOL [Concomitant]
     Dosage: 100 MG, 3X/DAY
     Route: 048
     Dates: start: 20130918
  12. FENTANYL [Concomitant]
     Dosage: 12 UG (ONE PATCH EVERY 72 HOURS)
     Dates: start: 20130213
  13. FENTANYL [Concomitant]
     Dosage: 25 UG, (ONE PATCH EVERY 72 HOURS)
     Dates: start: 20130314
  14. NORCO [Concomitant]
     Indication: PAIN
     Dosage: 1 DF, AS NEEDED  (1 TAB Q 6 HRS PRN)
     Dates: start: 20130719
  15. PERCOCET [Concomitant]
     Dosage: 1 DF, 3X/DAY [OXYCODONE HYDROCHLORIDE7.5/PARACETAMOL 325]
     Dates: start: 20111114
  16. PERCOCET [Concomitant]
     Dosage: 2 DF, 3X/DAY [OXYCODONE HYDROCHLORIDE 10/PARACETAMOL 325]
     Dates: start: 20120517
  17. PERCOCET [Concomitant]
     Dosage: 2 DF, 3X/DAY [OXYCODONE HYDROCHLORIDE 7.5/PARACETAMOL 325]
     Dates: start: 20130322
  18. TOPAMAX [Concomitant]
     Dosage: 50 MG, 2X/DAY (TAKE 1 PILL BY MOUTH BID)
     Route: 048
     Dates: start: 20111228

REACTIONS (1)
  - Arthritis [Unknown]
